FAERS Safety Report 13066394 (Version 1)
Quarter: 2016Q4

REPORT INFORMATION
  Report Type: Spontaneous
  Country: US (occurrence: US)
  Receive Date: 20161227
  Receipt Date: 20161227
  Transmission Date: 20170207
  Serious: Yes (Hospitalization, Other)
  Sender: FDA-Public Use
  Company Number: US-MALLINCKRODT-T201601252

PATIENT
  Age: 68 Year
  Sex: Male

DRUGS (6)
  1. BACLOFEN. [Suspect]
     Active Substance: BACLOFEN
     Indication: MUSCLE SPASTICITY
     Dosage: 225 ?G, QD
     Route: 037
  2. BACLOFEN. [Suspect]
     Active Substance: BACLOFEN
     Dosage: 900 ?G, QD
     Route: 037
  3. BACLOFEN. [Suspect]
     Active Substance: BACLOFEN
     Route: 048
  4. GABLOFEN [Suspect]
     Active Substance: BACLOFEN
     Dosage: 945 ?G, QD
     Route: 037
  5. GABLOFEN [Suspect]
     Active Substance: BACLOFEN
     Indication: MUSCLE SPASTICITY
     Dosage: 850 ?G, QD
     Route: 037
  6. GABLOFEN [Suspect]
     Active Substance: BACLOFEN
     Dosage: 925 ?G, QD
     Route: 037

REACTIONS (4)
  - Amnesia [Unknown]
  - Device issue [Unknown]
  - Drug ineffective [Unknown]
  - Cerebral disorder [Unknown]

NARRATIVE: CASE EVENT DATE: 20151019
